FAERS Safety Report 25102381 (Version 8)
Quarter: 2025Q4

REPORT INFORMATION
  Report Type: Spontaneous
  Country: US (occurrence: US)
  Receive Date: 20250320
  Receipt Date: 20251124
  Transmission Date: 20260117
  Serious: Yes (Hospitalization, Other)
  Sender: CSL BEHRING
  Company Number: US-BEH-2025199417

PATIENT
  Age: 45 Year
  Sex: Female
  Weight: 97.5 kg

DRUGS (5)
  1. HAEGARDA [Suspect]
     Active Substance: HUMAN C1-ESTERASE INHIBITOR
     Indication: Prophylaxis
     Dosage: 6000 IU, BIW
     Route: 058
     Dates: start: 202310
  2. HAEGARDA [Suspect]
     Active Substance: HUMAN C1-ESTERASE INHIBITOR
     Indication: Hereditary angioedema
     Dosage: 6000 IU, AS ORDERED
     Route: 058
  3. HAEGARDA [Suspect]
     Active Substance: HUMAN C1-ESTERASE INHIBITOR
     Dosage: 6000 IU/KG, BIW
     Route: 058
  4. XOLAIR [Concomitant]
     Active Substance: OMALIZUMAB
  5. SAJAZIR [Concomitant]
     Active Substance: ICATIBANT ACETATE

REACTIONS (24)
  - Hereditary angioedema [Unknown]
  - Hereditary angioedema [Unknown]
  - Hereditary angioedema [Unknown]
  - Seizure [Unknown]
  - Product dose omission issue [Unknown]
  - Intentional product use issue [Unknown]
  - Seizure [Unknown]
  - Panic attack [Unknown]
  - Confusional state [Unknown]
  - Hereditary angioedema [Unknown]
  - Hereditary angioedema [Recovered/Resolved]
  - Hereditary angioedema [Recovered/Resolved]
  - Hereditary angioedema [Unknown]
  - Hereditary angioedema [Unknown]
  - Hereditary angioedema [Unknown]
  - Hereditary angioedema [Unknown]
  - Hereditary angioedema [Unknown]
  - Hereditary angioedema [Unknown]
  - Nausea [Unknown]
  - Weight increased [Unknown]
  - Depression [Unknown]
  - Anxiety [Unknown]
  - Mental disorder [Unknown]
  - Weight decreased [Unknown]

NARRATIVE: CASE EVENT DATE: 20250201
